FAERS Safety Report 10275018 (Version 2)
Quarter: 2014Q3

REPORT INFORMATION
  Report Type: Spontaneous
  Country: BR (occurrence: BR)
  Receive Date: 20140703
  Receipt Date: 20140707
  Transmission Date: 20150326
  Serious: Yes (Other)
  Sender: FDA-Public Use
  Company Number: BR-ROCHE-1427223

PATIENT
  Age: 57 Year
  Sex: Female
  Weight: 73.5 kg

DRUGS (8)
  1. DRAMAMINE [Concomitant]
     Active Substance: DIMENHYDRINATE
     Dosage: IF REQUIRED
     Route: 048
     Dates: start: 20140328
  2. OMEPRAZOLE. [Concomitant]
     Active Substance: OMEPRAZOLE
     Indication: GASTRITIS
     Route: 048
  3. RIBAVIRIN. [Suspect]
     Active Substance: RIBAVIRIN
     Dosage: 3 CAPSULES IN THE MORNING AND 2 AT NIGHT
     Route: 048
     Dates: start: 20140612
  4. PEGINTERFERON ALFA-2A [Suspect]
     Active Substance: PEGINTERFERON ALFA-2A
     Route: 058
     Dates: start: 20140612
  5. PARACETAMOL [Concomitant]
     Active Substance: ACETAMINOPHEN
     Dosage: IF REQUIRED
     Route: 048
  6. RIBAVIRIN. [Suspect]
     Active Substance: RIBAVIRIN
     Indication: HEPATITIS C
     Dosage: 3 CAPSULES IN THE MORNING AND 2 AT NIGHT
     Route: 048
     Dates: start: 20140328, end: 20140516
  7. PEGINTERFERON ALFA-2A [Suspect]
     Active Substance: PEGINTERFERON ALFA-2A
     Indication: HEPATITIS C
     Route: 058
     Dates: start: 20140328, end: 20140516
  8. FILGRASTIM [Concomitant]
     Active Substance: FILGRASTIM
     Indication: NEUTROPENIA
     Route: 058
     Dates: start: 20140616

REACTIONS (3)
  - Scab [Recovering/Resolving]
  - Prurigo [Recovered/Resolved]
  - Erythema [Recovered/Resolved]

NARRATIVE: CASE EVENT DATE: 20140509
